FAERS Safety Report 5589285-6 (Version None)
Quarter: 2008Q1

REPORT INFORMATION
  Report Type: 
  Country: None (occurrence: None)
  Receive Date: 20080114
  Receipt Date: 20080104
  Transmission Date: 20080703
  Serious: Yes (Hospitalization)
  Sender: FDA-Public Use
  Company Number: PHRM2008FR00502

PATIENT
  Age: 85 Year
  Sex: Female

DRUGS (8)
  1. TAREG [Suspect]
     Dosage: 80 MG, QD
     Route: 048
     Dates: end: 20070826
  2. TAREG [Suspect]
     Dosage: 40 MG, QD
     Route: 048
  3. LASILIX [Suspect]
     Dosage: 40 MG, QD
     Route: 048
     Dates: end: 20070826
  4. LASILIX [Suspect]
     Dosage: 20 MG, QD
     Route: 048
  5. KARDEGIC [Concomitant]
  6. TAHOR [Concomitant]
  7. LEXOMIL [Concomitant]
  8. CARDENSIEL [Concomitant]

REACTIONS (5)
  - BLOOD CREATININE INCREASED [None]
  - FALL [None]
  - HYPERKALAEMIA [None]
  - HYPONATRAEMIA [None]
  - RENAL FAILURE [None]
